FAERS Safety Report 8052704-X (Version None)
Quarter: 2012Q1

REPORT INFORMATION
  Report Type: 
  Country: None (occurrence: None)
  Receive Date: 20120118
  Receipt Date: 20120118
  Transmission Date: 20120608
  Serious: Yes (Life-Threatening, Hospitalization)
  Sender: FDA-Public Use
  Company Number: None

PATIENT
  Sex: Male
  Weight: 144.69 kg

DRUGS (3)
  1. ADEPIX [Suspect]
     Indication: ASTHENIA
     Dosage: 3
     Dates: start: 20050529, end: 20110927
  2. ADEPIX [Suspect]
     Indication: WEIGHT CONTROL
     Dosage: 3
     Dates: start: 20050529, end: 20110927
  3. XANAX [Concomitant]
     Indication: SLEEP DISORDER
     Dosage: 4
     Dates: start: 20050527, end: 20111009

REACTIONS (5)
  - QUALITY OF LIFE DECREASED [None]
  - FEELING ABNORMAL [None]
  - DEPRESSION [None]
  - IMPAIRED WORK ABILITY [None]
  - INSOMNIA [None]
